FAERS Safety Report 4524782-3 (Version None)
Quarter: 2004Q4

REPORT INFORMATION
  Report Type: 
  Country: None (occurrence: None)
  Receive Date: 20041208
  Receipt Date: 20041122
  Transmission Date: 20050328
  Serious: Yes (Hospitalization, Other)
  Sender: FDA-Public Use
  Company Number: 2004-ES-00229ES

PATIENT
  Age: 79 Year
  Sex: Male

DRUGS (5)
  1. ATROVENT [Suspect]
     Indication: CHRONIC OBSTRUCTIVE AIRWAYS DISEASE
     Dosage: (20 MCG, 3 IH/6H) IH
     Route: 055
     Dates: start: 20040801
  2. FORMOTEROL (FORMOTEROL) (AE) (TOLIPROLOL-HCL, DIPYRIDAMOLE-HCL) [Concomitant]
  3. FLUTICASONE (FLUTICASONE) (AE) [Concomitant]
  4. THEOPHYLLINE (THEOPHYLLINE) (KA) [Concomitant]
  5. TORASEMIDE (TORASEMIDE) (KA) [Concomitant]

REACTIONS (4)
  - BRONCHOSPASM [None]
  - DYSPNOEA [None]
  - INFLAMMATION [None]
  - LOCAL SWELLING [None]
